FAERS Safety Report 15905215 (Version 2)
Quarter: 2019Q2

REPORT INFORMATION
  Report Type: Report from Study
  Country: None (occurrence: JP)
  Receive Date: 20190204
  Receipt Date: 20190611
  Transmission Date: 20190711
  Serious: Yes (Death)
  Sender: FDA-Public Use
  Company Number: JP-ABBVIE-18S-087-2575144-00

PATIENT
  Age: 70 Year
  Sex: Male
  Weight: 58 kg

DRUGS (3)
  1. DUODOPA [Suspect]
     Active Substance: CARBIDOPA\LEVODOPA
     Indication: PARKINSON^S DISEASE
     Route: 050
     Dates: start: 20180112, end: 20180117
  2. DUODOPA [Suspect]
     Active Substance: CARBIDOPA\LEVODOPA
     Dosage: MD: 7 ML CD: 2.6 ML/HR ? 16 HRS
     Route: 050
     Dates: start: 20180118, end: 20180119
  3. DUODOPA [Suspect]
     Active Substance: CARBIDOPA\LEVODOPA
     Dosage: MD: 7 ML CD: 2.7 ML/HR ? 16 HRS
     Route: 050
     Dates: start: 20180119, end: 20180222

REACTIONS (3)
  - Dyskinesia [Recovering/Resolving]
  - Drug ineffective [Unknown]
  - Condition aggravated [Fatal]

NARRATIVE: CASE EVENT DATE: 20180117
